FAERS Safety Report 10606187 (Version 1)
Quarter: 2014Q4

REPORT INFORMATION
  Report Type: Report from Study
  Country: CN (occurrence: CN)
  Receive Date: 20141125
  Receipt Date: 20141125
  Transmission Date: 20150529
  Serious: Yes (Death, Other)
  Sender: FDA-Public Use
  Company Number: CN-ACTELION-A-CH2014-108318

PATIENT
  Age: 32 Year
  Sex: Female

DRUGS (3)
  1. VENTAVIS [Suspect]
     Active Substance: ILOPROST
     Indication: PULMONARY ARTERIAL HYPERTENSION
     Dosage: 6 TO 9 TIMES DAILY
     Route: 055
  2. SILDENAFIL. [Concomitant]
     Active Substance: SILDENAFIL
  3. DIGITALIS [Concomitant]
     Active Substance: DIGITALIS

REACTIONS (3)
  - Sudden death [Fatal]
  - Arterial rupture [Unknown]
  - Cardiac failure [Unknown]
